FAERS Safety Report 5692274-4 (Version None)
Quarter: 2008Q1

REPORT INFORMATION
  Report Type: 
  Country: None (occurrence: None)
  Receive Date: 20080331
  Receipt Date: 20080320
  Transmission Date: 20080703
  Serious: Yes (Hospitalization)
  Sender: FDA-Public Use
  Company Number: B0396454A

PATIENT
  Age: 47 Year
  Sex: Female

DRUGS (1)
  1. EPIVIR [Suspect]
     Indication: HEPATITIS B
     Dosage: ORAL
     Route: 048
     Dates: start: 20050726, end: 20050912

REACTIONS (13)
  - ALANINE AMINOTRANSFERASE INCREASED [None]
  - ASPARTATE AMINOTRANSFERASE INCREASED [None]
  - BILIRUBIN CONJUGATED INCREASED [None]
  - BLOOD ALBUMIN DECREASED [None]
  - BLOOD BILIRUBIN INCREASED [None]
  - DERMATITIS [None]
  - HAEMOGLOBIN DECREASED [None]
  - HAEMORRHAGE [None]
  - PROTHROMBIN TIME PROLONGED [None]
  - RASH [None]
  - RASH MACULAR [None]
  - RASH PRURITIC [None]
  - SCRATCH [None]
